FAERS Safety Report 8101889-5 (Version None)
Quarter: 2012Q1

REPORT INFORMATION
  Report Type: 
  Country: None (occurrence: None)
  Receive Date: 20120131
  Receipt Date: 20120130
  Transmission Date: 20120608
  Serious: Yes (Death, Hospitalization, Other)
  Sender: FDA-Public Use
  Company Number: US-AMGEN-QUU434492

PATIENT
  Age: 83 Year
  Sex: Female
  Weight: 57.143 kg

DRUGS (1)
  1. NPLATE [Suspect]
     Indication: IDIOPATHIC THROMBOCYTOPENIC PURPURA
     Dosage: 7 MUG/KG, UNK
     Dates: start: 20081009, end: 20090602

REACTIONS (3)
  - PULMONARY EMBOLISM [None]
  - TOXICITY TO VARIOUS AGENTS [None]
  - PNEUMONIA [None]
